FAERS Safety Report 7434888-7 (Version None)
Quarter: 2011Q2

REPORT INFORMATION
  Report Type: 
  Country: None (occurrence: None)
  Receive Date: 20110425
  Receipt Date: 20110418
  Transmission Date: 20111010
  Serious: Yes (Other)
  Sender: FDA-Public Use
  Company Number: US-ROCHE-751892

PATIENT
  Sex: Male
  Weight: 59 kg

DRUGS (6)
  1. ACCUTANE [Suspect]
     Route: 065
     Dates: start: 19980101
  2. ACCUTANE [Suspect]
     Route: 065
     Dates: start: 19930101, end: 19940101
  3. ACCUTANE [Suspect]
     Route: 065
     Dates: start: 19950101, end: 19970101
  4. ACETAMINOPHEN [Concomitant]
  5. MOTRIN [Concomitant]
  6. ACCUTANE [Suspect]
     Route: 065
     Dates: start: 20000309, end: 20000501

REACTIONS (5)
  - CROHN'S DISEASE [None]
  - DEPRESSED MOOD [None]
  - INFLAMMATORY BOWEL DISEASE [None]
  - ANXIETY [None]
  - INTESTINAL OBSTRUCTION [None]
